FAERS Safety Report 17264381 (Version 3)
Quarter: 2020Q1

REPORT INFORMATION
  Report Type: Spontaneous
  Country: US (occurrence: US)
  Receive Date: 20200113
  Receipt Date: 20200219
  Transmission Date: 20200409
  Serious: Yes (Other)
  Sender: FDA-Public Use
  Company Number: US-NAPPMUNDI-USA-2019-0149271

PATIENT
  Sex: Male
  Weight: 80.73 kg

DRUGS (14)
  1. OXYCODONE HYDROCHLORIDE (SIMILAR TO NDA 22-272) [Suspect]
     Active Substance: OXYCODONE HYDROCHLORIDE
     Indication: POST POLIO SYNDROME
     Dosage: 3X30 MG, DAILY
     Route: 048
  2. OXYCONTIN [Suspect]
     Active Substance: OXYCODONE HYDROCHLORIDE
     Indication: PAIN
     Dosage: 80 MG, TID
     Route: 048
     Dates: start: 2002, end: 2017
  3. OXYCODONE HYDROCHLORIDE. [Suspect]
     Active Substance: OXYCODONE HYDROCHLORIDE
     Indication: PAIN
     Dosage: 30 MG, TID
     Route: 048
     Dates: start: 2002
  4. METOPROLOL. [Concomitant]
     Active Substance: METOPROLOL
     Indication: CARDIAC DISORDER
     Dosage: 100 MG, UNK
     Route: 065
     Dates: start: 2009
  5. LANTUS [Concomitant]
     Active Substance: INSULIN GLARGINE
     Indication: DIABETES MELLITUS
     Dosage: 12 UNIT, UNK
     Route: 065
     Dates: start: 2017
  6. OXYCODONE HYDROCHLORIDE. [Suspect]
     Active Substance: OXYCODONE HYDROCHLORIDE
     Indication: ARTHRALGIA
  7. OXYCONTIN [Suspect]
     Active Substance: OXYCODONE HYDROCHLORIDE
     Indication: BACK PAIN
     Dosage: 40 MG, UNK
     Route: 048
     Dates: start: 2003, end: 20191012
  8. OXYCODONE HYDROCHLORIDE. [Suspect]
     Active Substance: OXYCODONE HYDROCHLORIDE
     Indication: BREAKTHROUGH PAIN
  9. OXYCODONE HYDROCHLORIDE. [Suspect]
     Active Substance: OXYCODONE HYDROCHLORIDE
     Indication: BACK PAIN
  10. DIAZEPAM. [Concomitant]
     Active Substance: DIAZEPAM
     Indication: STRESS
     Dosage: 10 MG, TID
     Route: 048
  11. OXYCONTIN [Suspect]
     Active Substance: OXYCODONE HYDROCHLORIDE
     Indication: ARTHRALGIA
     Dosage: 320 MG, DAILY
     Route: 048
  12. METFORMIN [Concomitant]
     Active Substance: METFORMIN HYDROCHLORIDE
     Indication: DIABETES MELLITUS
     Dosage: 1000 MG, BID
     Route: 065
     Dates: start: 2010
  13. OXYCODONE HYDROCHLORIDE (SIMILAR TO NDA 22-272) [Suspect]
     Active Substance: OXYCODONE HYDROCHLORIDE
     Indication: PAIN
     Dosage: 30 MG, TID
     Route: 048
     Dates: end: 2019
  14. OXYCONTIN [Suspect]
     Active Substance: OXYCODONE HYDROCHLORIDE
     Indication: POST POLIO SYNDROME

REACTIONS (19)
  - Mental disorder [Unknown]
  - Drug withdrawal syndrome [Unknown]
  - Bankruptcy [Not Recovered/Not Resolved]
  - Hypertension [Recovered/Resolved]
  - Gait disturbance [Not Recovered/Not Resolved]
  - Product quality issue [Unknown]
  - Emotional disorder [Unknown]
  - Behaviour disorder [Unknown]
  - Unevaluable event [Unknown]
  - Social avoidant behaviour [Unknown]
  - General physical health deterioration [Unknown]
  - Ill-defined disorder [Unknown]
  - Transient ischaemic attack [Unknown]
  - Personality change [Unknown]
  - Drug dependence [Unknown]
  - Hypoaesthesia [Not Recovered/Not Resolved]
  - Euphoric mood [Unknown]
  - Off label use [Unknown]
  - Drug tolerance increased [Unknown]

NARRATIVE: CASE EVENT DATE: 2002
